FAERS Safety Report 17053531 (Version 1)
Quarter: 2019Q4

REPORT INFORMATION
  Report Type: Spontaneous
  Country: GB (occurrence: GB)
  Receive Date: 20191120
  Receipt Date: 20191120
  Transmission Date: 20200122
  Serious: Yes (Life-Threatening, Disabling, Other)
  Sender: FDA-Public Use
  Company Number: GB-PFIZER INC-2019499758

PATIENT
  Age: 74 Year
  Sex: Female
  Weight: 72 kg

DRUGS (9)
  1. OMEPRAZOLE. [Concomitant]
     Active Substance: OMEPRAZOLE
     Dosage: 1 DF, UP TO TWICE DAILY.
     Dates: start: 20180709
  2. GABAPENTIN. [Suspect]
     Active Substance: GABAPENTIN
     Indication: SCIATICA
     Dosage: 300 MG, UNK
     Dates: start: 20181130
  3. IRBESARTAN. [Concomitant]
     Active Substance: IRBESARTAN
     Dosage: 1 DF, 1X/DAY
     Dates: start: 20180709
  4. CLONAZEPAM. [Suspect]
     Active Substance: CLONAZEPAM
     Dosage: 3 DF, 1X/DAY
     Dates: start: 20180709, end: 20180904
  5. INDAPAMIDE. [Concomitant]
     Active Substance: INDAPAMIDE
     Dosage: 1 DF, 1X/DAY (EVERY MORNING.)
     Dates: start: 20180709
  6. VOLTAROL 12 HOUR EMULGEL [Concomitant]
     Dosage: 3 DF, 1X/DAY (APPLY.)
     Dates: start: 20180709
  7. GABAPENTIN. [Suspect]
     Active Substance: GABAPENTIN
     Indication: NEURALGIA
     Dosage: UNK
  8. PROGYNOVA [ESTRADIOL VALERATE] [Concomitant]
     Active Substance: ESTRADIOL VALERATE
     Dosage: ONE A DAY OR ALTERNATE DAYS
     Dates: start: 20180709
  9. TRAMADOL. [Concomitant]
     Active Substance: TRAMADOL
     Dosage: (1-2 UP TO FOUR TIMES DAILY WHEN REQUIRED (MAX 8...)
     Dates: start: 20180904, end: 20180916

REACTIONS (4)
  - Off label use [Unknown]
  - Personality change [Recovered/Resolved]
  - Suicidal ideation [Recovered/Resolved]
  - Product use in unapproved indication [Unknown]

NARRATIVE: CASE EVENT DATE: 20181130
